FAERS Safety Report 6832424-7 (Version None)
Quarter: 2010Q3

REPORT INFORMATION
  Report Type: 
  Country: None (occurrence: None)
  Receive Date: 20100712
  Receipt Date: 20070312
  Transmission Date: 20110219
  Serious: No
  Sender: FDA-Public Use
  Company Number: US-PFIZER INC-2007021281

PATIENT
  Sex: Female
  Weight: 51.71 kg

DRUGS (5)
  1. CHANTIX [Suspect]
     Indication: SMOKING CESSATION THERAPY
     Route: 048
     Dates: start: 20070223, end: 20070311
  2. BENADRYL [Suspect]
     Indication: RASH
     Dates: start: 20070311
  3. CORTISONE [Suspect]
     Indication: RASH
     Route: 061
     Dates: start: 20070311
  4. COZAAR [Concomitant]
  5. LIPITOR [Concomitant]

REACTIONS (7)
  - AGITATION [None]
  - DYSARTHRIA [None]
  - HYPOPHAGIA [None]
  - MALAISE [None]
  - NAUSEA [None]
  - RASH [None]
  - VOMITING [None]
